FAERS Safety Report 10746437 (Version 2)
Quarter: 2015Q2

REPORT INFORMATION
  Report Type: Report from Study
  Country: PL (occurrence: PL)
  Receive Date: 20150128
  Receipt Date: 20150415
  Transmission Date: 20150821
  Serious: Yes (Hospitalization, Other)
  Sender: FDA-Public Use
  Company Number: PHHY2015PL001560

PATIENT
  Age: 10 Year
  Sex: Male
  Weight: 29 kg

DRUGS (5)
  1. FOLIC ACID. [Concomitant]
     Active Substance: FOLIC ACID
     Indication: ANAEMIA
     Route: 048
  2. VITAMIN B6 [Concomitant]
     Active Substance: PYRIDOXINE HYDROCHLORIDE
     Indication: ANAEMIA
     Route: 048
  3. EXJADE [Suspect]
     Active Substance: DEFERASIROX
     Indication: ANAEMIA
     Dosage: 500 MG, QD
     Route: 048
     Dates: start: 201407
  4. HEPATIL [Concomitant]
     Indication: ANAEMIA
     Route: 048
  5. LUMINAL [Concomitant]
     Active Substance: PHENOBARBITAL SODIUM
     Indication: PRODUCT USED FOR UNKNOWN INDICATION
     Route: 065

REACTIONS (19)
  - Aspartate aminotransferase increased [Unknown]
  - Tonsillar hypertrophy [Unknown]
  - White blood cell count increased [Unknown]
  - Full blood count decreased [Unknown]
  - Red blood cell sedimentation rate decreased [Unknown]
  - Rhinitis [Unknown]
  - Oedema [Unknown]
  - Haematocrit decreased [Unknown]
  - Blood disorder [Unknown]
  - Pyrexia [Recovering/Resolving]
  - Platelet count increased [Unknown]
  - Thrombocytosis [Unknown]
  - Alanine aminotransferase increased [Unknown]
  - Lymphadenopathy [Recovering/Resolving]
  - Red blood cell count decreased [Unknown]
  - Vomiting [Unknown]
  - Inflammation [Unknown]
  - C-reactive protein decreased [Unknown]
  - Haemoglobin decreased [Unknown]

NARRATIVE: CASE EVENT DATE: 20150105
